FAERS Safety Report 25510852 (Version 1)
Quarter: 2025Q3

REPORT INFORMATION
  Report Type: Spontaneous
  Country: US (occurrence: US)
  Receive Date: 20250703
  Receipt Date: 20250703
  Transmission Date: 20251020
  Serious: No
  Sender: RADIUS PHARM
  Company Number: US-RADIUS HEALTH INC.-2024US006219

PATIENT
  Age: 73 Year
  Sex: Female
  Weight: 51.791 kg

DRUGS (1)
  1. TYMLOS [Suspect]
     Active Substance: ABALOPARATIDE
     Indication: Neovascular age-related macular degeneration
     Route: 058
     Dates: start: 20240807

REACTIONS (6)
  - Product dose omission in error [Unknown]
  - Abdominal distension [Unknown]
  - Erythema [Recovered/Resolved]
  - Headache [Unknown]
  - Product use complaint [Unknown]
  - Contusion [Unknown]

NARRATIVE: CASE EVENT DATE: 20240807
